FAERS Safety Report 24428287 (Version 1)
Quarter: 2024Q4

REPORT INFORMATION
  Report Type: Spontaneous
  Country: DE (occurrence: DE)
  Receive Date: 20241011
  Receipt Date: 20241011
  Transmission Date: 20250115
  Serious: Yes (Other)
  Sender: TORRENT
  Company Number: DE-TORRENT-00027296

PATIENT
  Age: 67 Year
  Sex: Male
  Weight: 94 kg

DRUGS (20)
  1. LEVOFLOXACIN [Suspect]
     Active Substance: LEVOFLOXACIN
     Indication: Product used for unknown indication
     Dosage: INTAKE FOR THREE DAYS AT THE BEGINNING OF AUGUST (5TABLETS)
     Route: 065
     Dates: start: 20240802, end: 20240804
  2. CORTISONE [Concomitant]
     Active Substance: CORTISONE
     Indication: Product used for unknown indication
     Dosage: UNKNOWN
  3. COTRIM [Concomitant]
     Active Substance: SULFAMETHOXAZOLE\TRIMETHOPRIM
     Indication: Product used for unknown indication
     Dosage: 1-0-0-0, TUESDAY +FNDAY
     Route: 065
  4. Delix [Concomitant]
     Indication: Product used for unknown indication
     Dosage: RAMIPRIL. 1-0-1-0
     Route: 065
  5. FALITHROM [Concomitant]
     Active Substance: PHENPROCOUMON
     Indication: Product used for unknown indication
     Dosage: GOAL-LNR 2-3
     Route: 065
  6. LEVOTHYROXINE SODIUM [Concomitant]
     Active Substance: LEVOTHYROXINE SODIUM
     Indication: Product used for unknown indication
     Dosage: 1-0-0-0
     Route: 065
     Dates: start: 20240819
  7. lbuhexal [Concomitant]
     Indication: Product used for unknown indication
     Dosage: DUE TO TENDINITIS MAX 1/DAY, 0-1-0-0
     Route: 065
  8. Locol [Concomitant]
     Indication: Product used for unknown indication
     Dosage: SINCE 15 AUG 2023 INSTEAD?OF ATORVASTATIN 0-0-1-0
  9. LYRICA [Concomitant]
     Active Substance: PREGABALIN
     Indication: Product used for unknown indication
     Dosage: PREGABALIN INSTEAD OF GABAPENTIN SINCE JUN 2024, 1-0-0-1
     Route: 065
  10. Myrfortic [Concomitant]
     Indication: Product used for unknown indication
     Dosage: 1-0-1-0
     Route: 065
     Dates: start: 20230306
  11. Novalgin [Concomitant]
     Indication: Product used for unknown indication
     Dosage: : IF NEEDED 1-2/DAY, CURRENTLY NOT, 0-0-0-1
     Route: 065
  12. HYDROMORPHONE [Concomitant]
     Active Substance: HYDROMORPHONE
     Indication: Product used for unknown indication
     Dosage: HYDROMORPHON SELF-TERMINATED?SINCE MID-JUL, RESTARTING ON 26 SEP 2024, 1-0-1-0
     Route: 065
  13. PANTOZOL [Concomitant]
     Active Substance: PANTOPRAZOLE SODIUM
     Indication: Product used for unknown indication
     Dosage: 1- 0-0-0
     Route: 065
  14. PREDNISOLONE [Concomitant]
     Active Substance: PREDNISOLONE
     Indication: Product used for unknown indication
     Dosage: (REV. 01 SEP 2016): 1.5-0-0-0
     Route: 065
  15. PROGRAF [Concomitant]
     Active Substance: TACROLIMUS
     Indication: Product used for unknown indication
     Dosage: 2-0-2-0
     Route: 065
  16. TORSEMIDE [Concomitant]
     Active Substance: TORSEMIDE
     Indication: Product used for unknown indication
     Dosage: 1-0-1-0
     Route: 065
  17. TRAMADOL [Concomitant]
     Active Substance: TRAMADOL
     Indication: Product used for unknown indication
     Dosage: WITHDRAWN SINCE JUN 2024, 1-0-1-0
     Route: 065
  18. CHOLECALCIFEROL [Concomitant]
     Active Substance: CHOLECALCIFEROL
     Indication: Product used for unknown indication
     Dosage: 1-0-0-0
     Route: 065
  19. ACCakut [Concomitant]
     Indication: Product used for unknown indication
     Dosage: IF NEEDED 1-0-0-0
     Route: 065
  20. Actonei [Concomitant]
     Indication: Product used for unknown indication
     Dosage: ONE WEEKLY SINCE 14 FEB 2017,1-0-0-0
     Route: 065

REACTIONS (7)
  - Tendonitis [Not Recovered/Not Resolved]
  - Tendon pain [Unknown]
  - Pain [Unknown]
  - Quality of life decreased [Unknown]
  - Tendon rupture [Unknown]
  - Gait disturbance [Unknown]
  - Wheelchair user [Unknown]
